FAERS Safety Report 15767209 (Version 1)
Quarter: 2018Q4

REPORT INFORMATION
  Report Type: Spontaneous
  Country: IT (occurrence: IT)
  Receive Date: 20181227
  Receipt Date: 20181227
  Transmission Date: 20190205
  Serious: Yes (Hospitalization)
  Sender: FDA-Public Use
  Company Number: IT-ASTRAZENECA-2018SF68516

PATIENT
  Age: 66 Year
  Sex: Male

DRUGS (6)
  1. TAMSULOSIN HYDROCHLORIDE. [Concomitant]
     Active Substance: TAMSULOSIN HYDROCHLORIDE
  2. TAREG [Concomitant]
     Active Substance: VALSARTAN
  3. TORVAST [Concomitant]
     Active Substance: ATORVASTATIN
  4. BRILIQUE [Suspect]
     Active Substance: TICAGRELOR
     Route: 048
     Dates: start: 20181027, end: 20181103
  5. AVODART [Concomitant]
     Active Substance: DUTASTERIDE
  6. OMEPRAZOLE. [Concomitant]
     Active Substance: OMEPRAZOLE
     Dosage: 20.0MG UNKNOWN

REACTIONS (1)
  - Subdural hygroma [Unknown]

NARRATIVE: CASE EVENT DATE: 20181103
